FAERS Safety Report 4519513-7 (Version None)
Quarter: 2004Q4

REPORT INFORMATION
  Report Type: 
  Country: None (occurrence: None)
  Receive Date: 20041202
  Receipt Date: 20011122
  Transmission Date: 20050328
  Serious: Yes (Other)
  Sender: FDA-Public Use
  Company Number: 6011694F

PATIENT
  Sex: Female

DRUGS (1)
  1. NIASPAN [Suspect]

REACTIONS (5)
  - ANGINA PECTORIS [None]
  - ERYTHEMA [None]
  - EXANTHEM [None]
  - PRURITUS [None]
  - TACHYCARDIA [None]
